FAERS Safety Report 25633582 (Version 1)
Quarter: 2025Q3

REPORT INFORMATION
  Report Type: Spontaneous
  Country: IN (occurrence: IN)
  Receive Date: 20250801
  Receipt Date: 20250801
  Transmission Date: 20251020
  Serious: Yes (Death, Other)
  Sender: PFIZER
  Company Number: IN-PFIZER INC-202500152861

PATIENT
  Age: 5 Decade
  Sex: Male

DRUGS (1)
  1. ELRANATAMAB [Suspect]
     Active Substance: ELRANATAMAB
     Indication: Plasma cell myeloma
     Dates: start: 202303

REACTIONS (7)
  - Immune effector cell-associated neurotoxicity syndrome [Fatal]
  - Toxic encephalopathy [Fatal]
  - Cytomegalovirus infection reactivation [Unknown]
  - Cytomegalovirus colitis [Unknown]
  - Hypogammaglobulinaemia [Unknown]
  - Facial paralysis [Unknown]
  - Viral upper respiratory tract infection [Unknown]

NARRATIVE: CASE EVENT DATE: 20230101
